FAERS Safety Report 11496141 (Version 1)
Quarter: 2015Q3

REPORT INFORMATION
  Report Type: Spontaneous
  Country: GB (occurrence: GB)
  Receive Date: 20150911
  Receipt Date: 20150911
  Transmission Date: 20151125
  Serious: Yes (Hospitalization)
  Sender: FDA-Public Use
  Company Number: GB-SA-2015SA137220

PATIENT
  Age: 69 Year

DRUGS (1)
  1. DRONEDARONE [Suspect]
     Active Substance: DRONEDARONE
     Indication: ATRIAL FIBRILLATION
     Route: 048
     Dates: start: 20140828, end: 20150817

REACTIONS (3)
  - Dysphagia [Unknown]
  - Liver function test abnormal [Recovering/Resolving]
  - Coagulopathy [Unknown]
